FAERS Safety Report 5312032-X (Version None)
Quarter: 2007Q2

REPORT INFORMATION
  Report Type: 
  Country: None (occurrence: None)
  Receive Date: 20070430
  Receipt Date: 20060905
  Transmission Date: 20071010
  Serious: No
  Sender: FDA-Public Use
  Company Number: 2006UW17396

PATIENT
  Age: 14 Year
  Sex: Female
  Weight: 52.3 kg

DRUGS (2)
  1. NEXIUM [Suspect]
     Indication: EOSINOPHILIC OESOPHAGITIS
     Route: 048
     Dates: start: 20060418, end: 20060809
  2. NEXIUM [Suspect]
     Route: 048
     Dates: start: 20060810, end: 20060811

REACTIONS (2)
  - SPEECH DISORDER [None]
  - SWOLLEN TONGUE [None]
